FAERS Safety Report 8485602-8 (Version None)
Quarter: 2012Q3

REPORT INFORMATION
  Report Type: 
  Country: None (occurrence: None)
  Receive Date: 20120703
  Receipt Date: 20120606
  Transmission Date: 20120928
  Serious: No
  Sender: FDA-Public Use
  Company Number: US-ASTRAZENECA-2010SE19943

PATIENT
  Age: 88 Year
  Sex: Female

DRUGS (26)
  1. NEXIUM [Suspect]
     Indication: GASTROOESOPHAGEAL REFLUX DISEASE
     Route: 048
  2. GAS-X [Concomitant]
  3. MIRALAX [Concomitant]
  4. ALLEGRA [Concomitant]
  5. PROPYLENE GLYCOL [Concomitant]
  6. PRED FORTE [Concomitant]
  7. CRESTOR [Suspect]
     Route: 048
  8. CRESTOR [Suspect]
     Route: 048
  9. TOPROL-XL [Suspect]
     Route: 048
  10. NITROGLYCERIN [Concomitant]
     Indication: CHEST DISCOMFORT
  11. MAXIMUM D3 [Concomitant]
  12. VITAMIN D [Concomitant]
  13. CALCIUM CARBONATE-VITAMIN D3 500 [Concomitant]
  14. AMOXICILLIN [Concomitant]
  15. FLONASE [Concomitant]
  16. THERAPEUTIC MULTIVITAMIN [Concomitant]
  17. COENZYME Q10 [Concomitant]
  18. EZETIMIBE [Concomitant]
  19. ZETIA [Concomitant]
  20. DENOSUMAB [Concomitant]
  21. CRESTOR [Suspect]
     Route: 048
  22. METOPROLOL TARTRATE [Suspect]
     Route: 048
     Dates: start: 20120425
  23. FLAXSEED [Concomitant]
  24. LASIX [Concomitant]
     Indication: OEDEMA PERIPHERAL
  25. ECOTRIN LOW STRENGTH [Concomitant]
  26. OMEGA-3 FATTY ACIDS [Concomitant]

REACTIONS (5)
  - MUSCLE DISORDER [None]
  - EYE DISORDER [None]
  - INTENTIONAL DRUG MISUSE [None]
  - DRUG PRESCRIBING ERROR [None]
  - MULTIPLE ALLERGIES [None]
